FAERS Safety Report 15982802 (Version 1)
Quarter: 2019Q1

REPORT INFORMATION
  Report Type: Report from Study
  Country: None (occurrence: CO)
  Receive Date: 20190219
  Receipt Date: 20190219
  Transmission Date: 20190418
  Serious: Yes (Hospitalization, Other)
  Sender: FDA-Public Use
  Company Number: CO-ABBVIE-19S-036-2672126-00

PATIENT
  Age: 63 Year
  Sex: Female
  Weight: 70 kg

DRUGS (1)
  1. ZEMPLAR [Suspect]
     Active Substance: PARICALCITOL
     Indication: HYPERPARATHYROIDISM SECONDARY
     Route: 048
     Dates: start: 20160229, end: 20190122

REACTIONS (5)
  - Venous thrombosis [Recovering/Resolving]
  - Headache [Recovering/Resolving]
  - Feeling hot [Recovering/Resolving]
  - Pyrexia [Recovering/Resolving]
  - Insomnia [Recovering/Resolving]

NARRATIVE: CASE EVENT DATE: 20190212
